FAERS Safety Report 8585441-3 (Version None)
Quarter: 2012Q3

REPORT INFORMATION
  Report Type: 
  Country: None (occurrence: None)
  Receive Date: 20120810
  Receipt Date: 20120807
  Transmission Date: 20120928
  Serious: Yes (Hospitalization)
  Sender: FDA-Public Use
  Company Number: DE-SANOFI-AVENTIS-2012SA056337

PATIENT
  Age: 71 Year
  Sex: Female
  Weight: 102 kg

DRUGS (8)
  1. NEBIVOLOL [Concomitant]
     Route: 048
  2. NEBIVOLOL [Concomitant]
     Route: 048
  3. ALISKIREN [Concomitant]
     Route: 048
  4. MULTAQ [Suspect]
     Indication: ATRIAL FLUTTER
     Route: 048
     Dates: start: 20120723, end: 20120729
  5. VALSARTAN [Concomitant]
     Route: 048
  6. AMLODIPINE [Concomitant]
     Route: 048
  7. MARCUMAR [Concomitant]
     Indication: ATRIAL FLUTTER
     Route: 048
  8. TORSEMIDE [Concomitant]
     Route: 048

REACTIONS (3)
  - MYALGIA [None]
  - DIARRHOEA [None]
  - TRANSAMINASES INCREASED [None]
